FAERS Safety Report 7964097-4 (Version None)
Quarter: 2011Q4

REPORT INFORMATION
  Report Type: 
  Country: None (occurrence: None)
  Receive Date: 20111206
  Receipt Date: 20111122
  Transmission Date: 20120403
  Serious: Yes (Other)
  Sender: FDA-Public Use
  Company Number: TPA2011A07953

PATIENT

DRUGS (1)
  1. ULORIC [Suspect]
     Dosage: 40 MG

REACTIONS (1)
  - ILEUS [None]
